FAERS Safety Report 7417309-X (Version None)
Quarter: 2011Q2

REPORT INFORMATION
  Report Type: 
  Country: None (occurrence: None)
  Receive Date: 20110415
  Receipt Date: 20110408
  Transmission Date: 20111010
  Serious: Yes (Death, Hospitalization, Other)
  Sender: FDA-Public Use
  Company Number: US-BRISTOL-MYERS SQUIBB COMPANY-15280852

PATIENT
  Age: 75 Year
  Sex: Male

DRUGS (17)
  1. OXYGEN [Concomitant]
  2. POTASSIUM CHLORIDE [Concomitant]
  3. TRAZODONE HCL [Concomitant]
     Dosage: TRAZADONE 50MG AT BED TIME.
  4. NOVOLIN N [Concomitant]
  5. MULTI-VITAMIN [Concomitant]
  6. ASPIRIN [Concomitant]
  7. SINGULAIR [Concomitant]
  8. AVODART [Concomitant]
  9. ATIVAN [Concomitant]
  10. ONGLYZA [Suspect]
     Dosage: 60 DAYS AGO
     Dates: start: 20100101
  11. IBUPROFEN [Concomitant]
  12. METFORMIN [Concomitant]
  13. PRAVASTATIN SODIUM [Concomitant]
  14. FUROSEMIDE [Concomitant]
  15. ALBUTEROL [Concomitant]
     Dosage: 1 DF= 1 PUFF.
     Route: 055
  16. CARVEDILOL [Concomitant]
  17. ENALAPRIL MALEATE [Concomitant]

REACTIONS (6)
  - HYPOXIC-ISCHAEMIC ENCEPHALOPATHY [None]
  - ACUTE RESPIRATORY DISTRESS SYNDROME [None]
  - SEPSIS [None]
  - BLOOD GLUCOSE ABNORMAL [None]
  - EPISTAXIS [None]
  - PNEUMONIA [None]
